FAERS Safety Report 14149703 (Version 1)
Quarter: 2017Q4

REPORT INFORMATION
  Report Type: Not Available
  Country: US (occurrence: US)
  Receive Date: 20171101
  Receipt Date: 20171101
  Transmission Date: 20180321
  Serious: No
  Sender: FDA-Public Use
  Company Number: US-ANIPHARMA-2017-US-005569

PATIENT
  Age: 66 Year
  Sex: Male

DRUGS (4)
  1. FLECAINIDE ACETATE TABLETS 100 MG [Suspect]
     Active Substance: FLECAINIDE ACETATE
     Route: 048
  2. ELIQUIS [Concomitant]
     Active Substance: APIXABAN
  3. GEMFIBROZIL. [Concomitant]
     Active Substance: GEMFIBROZIL
  4. FLECAINIDE ACETATE TABLETS 150 MG [Suspect]
     Active Substance: FLECAINIDE ACETATE
     Route: 048
     Dates: start: 20170323

REACTIONS (5)
  - Product use complaint [Unknown]
  - Foreign body in respiratory tract [None]
  - Muscular weakness [Recovering/Resolving]
  - Therapy change [None]
  - Product physical issue [None]

NARRATIVE: CASE EVENT DATE: 20170323
